FAERS Safety Report 8835833 (Version 1)
Quarter: 2012Q4

REPORT INFORMATION
  Report Type: 
  Country: NL (occurrence: NL)
  Receive Date: 20121011
  Receipt Date: 20121011
  Transmission Date: 20130627
  Serious: Yes (Death, Life-Threatening)
  Sender: FDA-Public Use
  Company Number: NL-GLAXOSMITHKLINE-B0836571A

PATIENT
  Age: 55 Year
  Sex: Male

DRUGS (1)
  1. SEROXAT [Suspect]
     Indication: DEPRESSION
     Dosage: 40MG Per day
     Route: 048
     Dates: start: 20090216

REACTIONS (3)
  - Completed suicide [Fatal]
  - Mania [Fatal]
  - Psychotic disorder [Fatal]
